FAERS Safety Report 9005622 (Version 2)
Quarter: 2013Q1

REPORT INFORMATION
  Report Type: Report from Study
  Country: US (occurrence: US)
  Receive Date: 20130109
  Receipt Date: 20130314
  Transmission Date: 20140127
  Serious: Yes (Other)
  Sender: FDA-Public Use
  Company Number: US-ABBOTT-13P-163-1031904-00

PATIENT
  Age: 30 None
  Sex: Female
  Weight: 113.5 kg

DRUGS (8)
  1. LUPRON DEPOT [Suspect]
     Indication: ENDOMETRIOSIS
     Route: 030
     Dates: start: 2005
  2. LEVOTHYROXINE [Concomitant]
     Indication: PRODUCT USED FOR UNKNOWN INDICATION
  3. CITALOPRAM [Concomitant]
     Indication: PRODUCT USED FOR UNKNOWN INDICATION
  4. DIAZEPAM [Concomitant]
     Indication: PRODUCT USED FOR UNKNOWN INDICATION
  5. MULTIVITAMIN [Concomitant]
     Indication: PRODUCT USED FOR UNKNOWN INDICATION
     Dosage: DAILY
  6. OMEPRAZOLE [Concomitant]
     Indication: PRODUCT USED FOR UNKNOWN INDICATION
  7. SEROQUEL [Concomitant]
     Indication: PRODUCT USED FOR UNKNOWN INDICATION
     Dosage: AT BEDTIME
  8. YAZ [Concomitant]
     Indication: PRODUCT USED FOR UNKNOWN INDICATION
     Dosage: DAILY

REACTIONS (16)
  - Calcinosis [Unknown]
  - Hot flush [Recovered/Resolved]
  - Bipolar disorder [Unknown]
  - Joint arthroplasty [Unknown]
  - Gallbladder operation [Unknown]
  - Gallbladder operation [Unknown]
  - Foot operation [Unknown]
  - Foot operation [Unknown]
  - Foot operation [Unknown]
  - Foot operation [Unknown]
  - Foot operation [Unknown]
  - Endometriosis [Unknown]
  - Mood swings [Recovered/Resolved]
  - Emotional disorder [Recovered/Resolved]
  - Menopausal symptoms [Recovered/Resolved]
  - Hysterectomy [Unknown]
